FAERS Safety Report 7959005-6 (Version None)
Quarter: 2011Q4

REPORT INFORMATION
  Report Type: 
  Country: None (occurrence: None)
  Receive Date: 20111206
  Receipt Date: 20111130
  Transmission Date: 20120403
  Serious: Yes (Hospitalization, Other)
  Sender: FDA-Public Use
  Company Number: US-AMGEN-USASP2011060608

PATIENT
  Age: 66 Year
  Sex: Female

DRUGS (1)
  1. ENBREL [Suspect]
     Indication: RHEUMATOID ARTHRITIS
     Dosage: UNK
     Dates: start: 20010101, end: 20110201

REACTIONS (5)
  - COGNITIVE DISORDER [None]
  - PNEUMONIA [None]
  - CENTRAL NERVOUS SYSTEM INFECTION [None]
  - BRAIN ABSCESS [None]
  - AMNESIA [None]
